FAERS Safety Report 8425048 (Version 3)
Quarter: 2015Q2

REPORT INFORMATION
  Report Type: Spontaneous
  Country: US (occurrence: US)
  Receive Date: 20120224
  Receipt Date: 20150609
  Transmission Date: 20150821
  Serious: Yes (Death, Hospitalization, Other)
  Sender: FDA-Public Use
  Company Number: US-GLAXOSMITHKLINE-A0886478A

PATIENT
  Sex: Female

DRUGS (1)
  1. AVANDIA [Suspect]
     Active Substance: ROSIGLITAZONE MALEATE
     Indication: TYPE 2 DIABETES MELLITUS
     Dosage: 2 MG, QD
     Route: 048
     Dates: start: 20070101, end: 20100219

REACTIONS (9)
  - Gait disturbance [Unknown]
  - Dyspnoea [Unknown]
  - Death [Fatal]
  - Cardiac failure congestive [Not Recovered/Not Resolved]
  - Weight increased [Unknown]
  - Fluid retention [Unknown]
  - Walking aid user [Unknown]
  - Multiple allergies [Unknown]
  - Oxygen supplementation [Unknown]
